FAERS Safety Report 8406459 (Version 2)
Quarter: 2013Q3

REPORT INFORMATION
  Report Type: Spontaneous
  Country: US (occurrence: US)
  Receive Date: 20120215
  Receipt Date: 20130711
  Transmission Date: 20140515
  Serious: Yes (Other)
  Sender: FDA-Public Use
  Company Number: US-BAYER-2012-014200

PATIENT
  Age: 40 Year
  Sex: Female

DRUGS (8)
  1. YAZ [Suspect]
     Dosage: UNK
     Route: 048
  2. SINGULAIR [Concomitant]
     Dosage: 10 MG, UNK
  3. ADVAIR [Concomitant]
     Dosage: 250/50, UNK
  4. LEXAPRO [Concomitant]
     Dosage: 20 MG, UNK
  5. CEFDINIR [Concomitant]
     Dosage: 300 MG, UNK
  6. MULTIVITAMINS [Concomitant]
     Dosage: 1 TAB DAILY
     Route: 048
  7. IRON [Concomitant]
     Dosage: 50 MG, UNK
     Route: 048
  8. ALAVERT [Concomitant]
     Dosage: 1 TAB DAILY
     Route: 048

REACTIONS (1)
  - Deep vein thrombosis [None]
